FAERS Safety Report 14805934 (Version 1)
Quarter: 2018Q1

REPORT INFORMATION
  Report Type: Spontaneous
  Country: US (occurrence: US)
  Receive Date: 20180331
  Receipt Date: 20180331
  Transmission Date: 20180509
  Serious: No
  Sender: FDA-Public Use
  Company Number: None

PATIENT
  Age: 61 Year
  Sex: Male
  Weight: 148.5 kg

DRUGS (1)
  1. ALBUTEROL. [Suspect]
     Active Substance: ALBUTEROL

REACTIONS (2)
  - Paraesthesia oral [None]
  - Paraesthesia [None]

NARRATIVE: CASE EVENT DATE: 20180330
